FAERS Safety Report 9193681 (Version 1)
Quarter: 2013Q1

REPORT INFORMATION
  Report Type: Spontaneous
  Country: US (occurrence: None)
  Receive Date: 20130325
  Receipt Date: 20130325
  Transmission Date: 20140127
  Serious: No
  Sender: FDA-Public Use
  Company Number: None

PATIENT
  Age: 85 Year
  Sex: 0

DRUGS (1)
  1. TERAZOSIN [Suspect]
     Indication: HYPERTENSION
     Dosage: 1  QD  PO
     Route: 048

REACTIONS (2)
  - Blood pressure inadequately controlled [None]
  - Product quality issue [None]
